FAERS Safety Report 9581498 (Version 2)
Quarter: 2013Q4

REPORT INFORMATION
  Report Type: Report from Study
  Country: CA (occurrence: CA)
  Receive Date: 20131002
  Receipt Date: 20131118
  Transmission Date: 20140711
  Serious: Yes (Death)
  Sender: FDA-Public Use
  Company Number: PHHY2013CA109595

PATIENT
  Sex: Female

DRUGS (15)
  1. CLOZARIL [Suspect]
     Indication: SCHIZOPHRENIA
     Dosage: UNK
     Route: 048
     Dates: start: 20070803
  2. CLOZARIL [Suspect]
     Indication: SCHIZOAFFECTIVE DISORDER
     Dosage: 200 MG, UNK
     Route: 048
     Dates: start: 20090729
  3. PARACETAMOL [Suspect]
     Dosage: UNK
  4. INSULIN [Suspect]
     Indication: DIABETES MELLITUS
  5. LITHIUM [Concomitant]
  6. POTASSIUM [Concomitant]
  7. OXYCODONE [Concomitant]
  8. PANTOPRAZOLE [Concomitant]
  9. SYNTHROID [Concomitant]
  10. CALCIUM [Concomitant]
  11. ADVAIR [Concomitant]
  12. SPIRIVA [Concomitant]
  13. LAXATIVE [Concomitant]
  14. EFFEXOR [Concomitant]
  15. LIPITOR [Concomitant]

REACTIONS (1)
  - Toxicity to various agents [Fatal]
